FAERS Safety Report 7884341-1 (Version None)
Quarter: 2011Q4

REPORT INFORMATION
  Report Type: 
  Country: None (occurrence: None)
  Receive Date: 20111102
  Receipt Date: 20111028
  Transmission Date: 20120403
  Serious: Yes (Hospitalization)
  Sender: FDA-Public Use
  Company Number: CA-ABBOTT-11P-028-0868129-00

PATIENT
  Sex: Male
  Weight: 81.72 kg

DRUGS (1)
  1. HUMIRA [Suspect]
     Indication: CROHN'S DISEASE
     Route: 058
     Dates: start: 20110302

REACTIONS (5)
  - HAEMATOCHEZIA [None]
  - DIARRHOEA [None]
  - NAUSEA [None]
  - INFLAMMATION [None]
  - CROHN'S DISEASE [None]
